FAERS Safety Report 6719377-7 (Version None)
Quarter: 2010Q2

REPORT INFORMATION
  Report Type: 
  Country: None (occurrence: None)
  Receive Date: 20100511
  Receipt Date: 20100429
  Transmission Date: 20101027
  Serious: Yes (Hospitalization, Other)
  Sender: FDA-Public Use
  Company Number: US-WYE-H14927610

PATIENT
  Sex: Female
  Weight: 47.67 kg

DRUGS (8)
  1. IBUPROFEN (ADVIL) [Suspect]
     Indication: PAIN
     Dosage: UNKNOWN
     Route: 048
  2. ALEVE (CAPLET) [Suspect]
     Indication: PAIN
     Dosage: UNKNOWN
     Route: 048
  3. LISINOPRIL [Concomitant]
     Indication: HYPERTENSION
     Route: 065
     Dates: start: 20080101
  4. EXCEDRIN (MIGRAINE) [Suspect]
     Indication: PAIN
     Dosage: UNKNOWN
     Route: 048
  5. KLONOPIN [Concomitant]
     Indication: DRUG USE FOR UNKNOWN INDICATION
     Dosage: 0.5 MG TABLETS, ON AND OFF
     Route: 048
     Dates: start: 20070101
  6. LEVOTHYROXINE SODIUM [Concomitant]
     Indication: THYROID DISORDER
     Route: 065
  7. LYRICA [Suspect]
     Indication: FIBROMYALGIA
     Route: 048
     Dates: start: 20080101
  8. TYLENOL-500 [Suspect]
     Indication: PAIN
     Dosage: UNKNOWN
     Route: 048

REACTIONS (2)
  - DRUG INEFFECTIVE [None]
  - KIDNEY INFECTION [None]
